FAERS Safety Report 9827969 (Version 2)
Quarter: 2014Q1

REPORT INFORMATION
  Report Type: Spontaneous
  Country: US (occurrence: US)
  Receive Date: 20140117
  Receipt Date: 20140117
  Transmission Date: 20141002
  Serious: Yes (Hospitalization, Other)
  Sender: FDA-Public Use
  Company Number: US-AMGEN-USASP2013075645

PATIENT
  Age: 59 Year
  Sex: Female

DRUGS (2)
  1. PROLIA [Suspect]
     Indication: OSTEOPOROSIS POSTMENOPAUSAL
     Dosage: UNK UNK,
     Route: 065
     Dates: start: 201303
  2. MAXALT [Concomitant]
     Indication: MIGRAINE
     Dosage: UNK UNK, AS NECESSARY

REACTIONS (9)
  - Pain [Unknown]
  - Back pain [Recovering/Resolving]
  - Gastrooesophageal reflux disease [Unknown]
  - Abdominal pain [Unknown]
  - Retching [Unknown]
  - Mobility decreased [Unknown]
  - Activities of daily living impaired [Unknown]
  - Tooth infection [Unknown]
  - Tooth disorder [Unknown]
